FAERS Safety Report 13193963 (Version 2)
Quarter: 2018Q1

REPORT INFORMATION
  Report Type: Spontaneous
  Country: IN (occurrence: IN)
  Receive Date: 20170207
  Receipt Date: 20180131
  Transmission Date: 20180508
  Serious: Yes (Hospitalization, Other)
  Sender: FDA-Public Use
  Company Number: IN-MYLANLABS-2017M1006595

PATIENT
  Age: 32 Year
  Sex: Female

DRUGS (8)
  1. CLOZAPINE. [Suspect]
     Active Substance: CLOZAPINE
     Dosage: 200 MG, HS
  2. HALOPERIDOL. [Suspect]
     Active Substance: HALOPERIDOL
     Indication: SCHIZOPHRENIA
     Dosage: 20 MG, QD
  3. HALOPERIDOL. [Suspect]
     Active Substance: HALOPERIDOL
     Dosage: 10 MG, QD
  4. LEVOTHYROXINE. [Concomitant]
     Active Substance: LEVOTHYROXINE
     Indication: HYPOTHYROIDISM
  5. CLOZAPINE. [Suspect]
     Active Substance: CLOZAPINE
     Indication: SCHIZOPHRENIA
     Dosage: 375 MG, QD
  6. CLOZAPINE. [Suspect]
     Active Substance: CLOZAPINE
     Dosage: 25 MG, AM
  7. CLOZAPINE. [Suspect]
     Active Substance: CLOZAPINE
     Dosage: UNK
  8. HALOPERIDOL. [Suspect]
     Active Substance: HALOPERIDOL
     Dosage: 2.5 MG, QD

REACTIONS (3)
  - Restless legs syndrome [Recovering/Resolving]
  - Psychosocial support [Recovering/Resolving]
  - Sleep disorder [Unknown]
